FAERS Safety Report 8888978 (Version 3)
Quarter: 2013Q2

REPORT INFORMATION
  Report Type: Spontaneous
  Country: US (occurrence: US)
  Receive Date: 20121106
  Receipt Date: 20130430
  Transmission Date: 20140414
  Serious: Yes (Death, Hospitalization)
  Sender: FDA-Public Use
  Company Number: US-ELI_LILLY_AND_COMPANY-US201210009524

PATIENT
  Age: 76 Year
  Sex: Female

DRUGS (7)
  1. ADCIRCA [Suspect]
     Indication: PULMONARY HYPERTENSION
     Dosage: 40 MG, QD
     Route: 048
     Dates: end: 20130217
  2. COUMADIN [Concomitant]
     Dosage: 5 MG, UNK
  3. PROCARDIA                          /00340701/ [Concomitant]
  4. METOPROLOL [Concomitant]
  5. CO Q10 [Concomitant]
  6. VITAMIN D [Concomitant]
  7. FISH OIL [Concomitant]

REACTIONS (4)
  - Respiratory failure [Fatal]
  - Hiatus hernia [Unknown]
  - Haemorrhage [Unknown]
  - Dyspnoea [Recovering/Resolving]
